FAERS Safety Report 8472184-X (Version None)
Quarter: 2012Q2

REPORT INFORMATION
  Report Type: 
  Country: None (occurrence: None)
  Receive Date: 20120627
  Receipt Date: 20120619
  Transmission Date: 20120825
  Serious: Yes (Hospitalization, Disabling)
  Sender: FDA-Public Use
  Company Number: US-MERCK-1202USA02463

PATIENT
  Age: 50 Year
  Sex: Female
  Weight: 65 kg

DRUGS (12)
  1. FOSAMAX PLUS D [Suspect]
     Indication: OSTEOPENIA
     Route: 048
     Dates: start: 20070721, end: 20100301
  2. FOSAMAX [Suspect]
     Indication: OSTEOPOROSIS
     Route: 048
     Dates: start: 19981001, end: 20001001
  3. FOSAMAX PLUS D [Suspect]
     Indication: OSTEOPOROSIS
     Route: 048
     Dates: start: 20070721, end: 20100301
  4. FOSAMAX [Suspect]
     Route: 048
     Dates: start: 19981020, end: 20020930
  5. FOSAMAX [Suspect]
     Route: 048
     Dates: start: 20030827, end: 20060601
  6. NASONEX [Concomitant]
     Route: 055
     Dates: start: 20100728
  7. CALCIUM (UNSPECIFIED) [Concomitant]
     Indication: OSTEOPOROSIS
     Route: 065
  8. FOSAMAX [Suspect]
     Route: 048
  9. FOSAMAX [Suspect]
     Route: 048
     Dates: start: 20030827, end: 20060601
  10. FOSAMAX [Suspect]
     Indication: OSTEOPENIA
     Route: 048
     Dates: start: 19981001, end: 20001001
  11. FOSAMAX [Suspect]
     Route: 048
  12. FOSAMAX [Suspect]
     Route: 048
     Dates: start: 19981020, end: 20020930

REACTIONS (44)
  - FEMUR FRACTURE [None]
  - THYROID NEOPLASM [None]
  - DRUG INTOLERANCE [None]
  - GAIT DISTURBANCE [None]
  - AORTIC ARTERIOSCLEROSIS [None]
  - BLADDER PROLAPSE [None]
  - IMPAIRED HEALING [None]
  - ARTHRALGIA [None]
  - ARTHROPATHY [None]
  - MYOCARDIAL ISCHAEMIA [None]
  - DRUG INEFFECTIVE [None]
  - CHEST PAIN [None]
  - HYPOKINESIA [None]
  - OSTEOARTHRITIS [None]
  - PALPITATIONS [None]
  - ATROPHIC VULVOVAGINITIS [None]
  - URINARY TRACT INFECTION [None]
  - BURSITIS [None]
  - LOW DENSITY LIPOPROTEIN INCREASED [None]
  - ARTERIOSCLEROSIS [None]
  - INGROWING NAIL [None]
  - HEART SOUNDS ABNORMAL [None]
  - TONSILLAR DISORDER [None]
  - DEPRESSION [None]
  - ROTATOR CUFF SYNDROME [None]
  - ATRIAL FIBRILLATION [None]
  - MITRAL VALVE CALCIFICATION [None]
  - DERMATITIS [None]
  - ANXIETY [None]
  - GASTROOESOPHAGEAL REFLUX DISEASE [None]
  - MUSCULOSKELETAL STIFFNESS [None]
  - HYPERTENSION [None]
  - HYPERCHOLESTEROLAEMIA [None]
  - FIBROCYSTIC BREAST DISEASE [None]
  - TRICUSPID VALVE INCOMPETENCE [None]
  - LOW TURNOVER OSTEOPATHY [None]
  - OVERDOSE [None]
  - ACUTE SINUSITIS [None]
  - EXOSTOSIS [None]
  - CARDIAC MURMUR [None]
  - POOR QUALITY SLEEP [None]
  - MITRAL VALVE INCOMPETENCE [None]
  - DYSURIA [None]
  - FALL [None]
